FAERS Safety Report 9133686 (Version 1)
Quarter: 2013Q1

REPORT INFORMATION
  Report Type: Spontaneous
  Country: US (occurrence: US)
  Receive Date: 20130302
  Receipt Date: 20130302
  Transmission Date: 20140127
  Serious: No
  Sender: FDA-Public Use
  Company Number: US-ENDO PHARMACEUTICALS INC.-ZYDN20110002

PATIENT
  Age: 44 Year
  Sex: Male

DRUGS (1)
  1. ZYDONE [Suspect]
     Indication: PAIN
     Dosage: 10/400 MG
     Route: 048
     Dates: start: 20110720

REACTIONS (1)
  - Faeces discoloured [Not Recovered/Not Resolved]
